FAERS Safety Report 8286807-1 (Version None)
Quarter: 2012Q2

REPORT INFORMATION
  Report Type: 
  Country: None (occurrence: None)
  Receive Date: 20120416
  Receipt Date: 20120410
  Transmission Date: 20120825
  Serious: Yes (Life-Threatening)
  Sender: FDA-Public Use
  Company Number: JP-BRISTOL-MYERS SQUIBB COMPANY-16513145

PATIENT

DRUGS (1)
  1. MAXIPIME [Suspect]
     Indication: CHOLANGITIS
     Route: 041
     Dates: start: 20120403

REACTIONS (1)
  - ASTHENIA [None]
